FAERS Safety Report 4707433-4 (Version None)
Quarter: 2005Q3

REPORT INFORMATION
  Report Type: 
  Country: None (occurrence: None)
  Receive Date: 20050706
  Receipt Date: 20050627
  Transmission Date: 20060218
  Serious: Yes (Other)
  Sender: FDA-Public Use
  Company Number: IT-BRISTOL-MYERS SQUIBB COMPANY-13017082

PATIENT

DRUGS (1)
  1. METHOTREXATE [Suspect]
     Indication: RHEUMATOID ARTHRITIS

REACTIONS (8)
  - ANAEMIA MACROCYTIC [None]
  - ANOREXIA [None]
  - ASTHENIA [None]
  - BRONCHOPNEUMONIA [None]
  - DIARRHOEA [None]
  - FOLATE DEFICIENCY [None]
  - GASTRITIS ATROPHIC [None]
  - INTESTINAL VILLI ATROPHY [None]
